FAERS Safety Report 22146791 (Version 1)
Quarter: 2023Q1

REPORT INFORMATION
  Report Type: Spontaneous
  Country: EG (occurrence: EG)
  Receive Date: 20230328
  Receipt Date: 20230328
  Transmission Date: 20230418
  Serious: Yes (Other)
  Sender: FDA-Public Use
  Company Number: EG-AMGEN-EGYSP2023049719

PATIENT

DRUGS (1)
  1. ADALIMUMAB [Suspect]
     Active Substance: ADALIMUMAB
     Indication: Uveitis
     Dosage: UNK
     Route: 065

REACTIONS (15)
  - Macular oedema [Unknown]
  - Iris adhesions [Unknown]
  - Glaucoma [Unknown]
  - Papilloedema [Unknown]
  - Macular hole [Unknown]
  - Retinal vein occlusion [Unknown]
  - Optic atrophy [Unknown]
  - Hypopyon [Unknown]
  - Retinal detachment [Unknown]
  - Blindness [Unknown]
  - Cataract [Unknown]
  - Maculopathy [Unknown]
  - Chorioretinal scar [Unknown]
  - Epiretinal membrane [Unknown]
  - Intra-ocular injection complication [Unknown]
